FAERS Safety Report 9611880 (Version 1)
Quarter: 2013Q4

REPORT INFORMATION
  Report Type: Spontaneous
  Country: GR (occurrence: GR)
  Receive Date: 20131010
  Receipt Date: 20131010
  Transmission Date: 20140711
  Serious: Yes (Hospitalization)
  Sender: FDA-Public Use
  Company Number: GR-JNJFOC-20131002290

PATIENT
  Age: 59 Year
  Sex: Female

DRUGS (2)
  1. SIMPONI [Suspect]
     Indication: PSORIATIC ARTHROPATHY
     Dosage: 1 AND HALF YEAR AGO
     Route: 058
  2. METHOTREXATE [Concomitant]
     Route: 065
     Dates: start: 2004

REACTIONS (1)
  - Cerebral artery thrombosis [Recovering/Resolving]
